FAERS Safety Report 9959260 (Version 1)
Quarter: 2014Q1

REPORT INFORMATION
  Report Type: Spontaneous
  Country: US (occurrence: None)
  Receive Date: 20140228
  Receipt Date: 20140228
  Transmission Date: 20141002
  Serious: No
  Sender: FDA-Public Use
  Company Number: None

PATIENT
  Sex: Male

DRUGS (1)
  1. NALBUPHINE HCL [Suspect]
     Route: 042

REACTIONS (2)
  - Product quality issue [None]
  - Physical product label issue [None]
